FAERS Safety Report 18198439 (Version 1)
Quarter: 2020Q3

REPORT INFORMATION
  Report Type: Spontaneous
  Country: IN (occurrence: IN)
  Receive Date: 20200826
  Receipt Date: 20200826
  Transmission Date: 20201103
  Serious: Yes (Life-Threatening, Hospitalization)
  Sender: FDA-Public Use
  Company Number: IN-MYLANLABS-2020M1074073

PATIENT
  Age: 62 Year
  Sex: Male

DRUGS (2)
  1. SIROLIMUS. [Concomitant]
     Active Substance: SIROLIMUS
     Indication: CORONARY ARTERY DISEASE
     Dosage: STENT PLACED
     Route: 065
  2. ADENOSINE. [Suspect]
     Active Substance: ADENOSINE
     Indication: ACUTE MYOCARDIAL INFARCTION
     Dosage: MULTIPLE BOLUSES THROUGH CATHETER (TOTAL 300MICROG)
     Route: 022

REACTIONS (2)
  - Hypoxia [Recovering/Resolving]
  - Respiratory failure [Recovering/Resolving]
